FAERS Safety Report 12908400 (Version 2)
Quarter: 2016Q4

REPORT INFORMATION
  Report Type: Report from Study
  Country: US (occurrence: US)
  Receive Date: 20161103
  Receipt Date: 20161111
  Transmission Date: 20170207
  Serious: Yes (Hospitalization, Other)
  Sender: FDA-Public Use
  Company Number: US-009507513-1610USA017260

PATIENT
  Age: 69 Year
  Sex: Male

DRUGS (1)
  1. PEMBROLIZUMAB. [Suspect]
     Active Substance: PEMBROLIZUMAB
     Indication: MALIGNANT MELANOMA
     Dosage: DOSE UNKNOWN / EVERY 3 WEEKS
     Route: 042
     Dates: start: 201504

REACTIONS (3)
  - Stress fracture [Not Recovered/Not Resolved]
  - Knee arthroplasty [Unknown]
  - Colitis [Unknown]

NARRATIVE: CASE EVENT DATE: 201602
